FAERS Safety Report 4606907-4 (Version None)
Quarter: 2005Q1

REPORT INFORMATION
  Report Type: 
  Country: None (occurrence: None)
  Receive Date: 20050310
  Receipt Date: 20050225
  Transmission Date: 20050727
  Serious: Yes (Other)
  Sender: FDA-Public Use
  Company Number: 2005034856

PATIENT
  Sex: Male
  Weight: 80.7403 kg

DRUGS (2)
  1. ZOLOFT [Suspect]
     Indication: PANIC ATTACK
     Dosage: SEE IMAGE
     Route: 048
     Dates: start: 20010101, end: 20040101
  2. NEURONTIN [Concomitant]
     Indication: PAIN IN EXTREMITY
     Dosage: 900 MG (300 MG, 3 IN 1 D), ORAL
     Route: 048
     Dates: start: 20041101

REACTIONS (9)
  - BACK INJURY [None]
  - BIPOLAR I DISORDER [None]
  - DEPRESSION [None]
  - DIZZINESS [None]
  - DRUG EFFECT DECREASED [None]
  - INTERVERTEBRAL DISC OPERATION [None]
  - MIGRAINE [None]
  - NEPHROLITHIASIS [None]
  - POST PROCEDURAL PAIN [None]
